FAERS Safety Report 7509443-0 (Version None)
Quarter: 2011Q2

REPORT INFORMATION
  Report Type: 
  Country: None (occurrence: None)
  Receive Date: 20110527
  Receipt Date: 20110513
  Transmission Date: 20111010
  Serious: Yes (Other)
  Sender: FDA-Public Use
  Company Number: US-BAYER-2011-043521

PATIENT
  Age: 27 Year
  Sex: Female
  Weight: 113 kg

DRUGS (2)
  1. CYCLOBENZAPRINE [Concomitant]
  2. BAYER EXTRA STRENGTH BACK + BODY PAIN [Suspect]
     Indication: BACK PAIN
     Dosage: 2 DF, PRN
     Route: 048
     Dates: start: 20110511

REACTIONS (3)
  - TINNITUS [None]
  - INSOMNIA [None]
  - POLYMENORRHOEA [None]
